FAERS Safety Report 19705654 (Version 2)
Quarter: 2021Q3

REPORT INFORMATION
  Report Type: Spontaneous
  Country: ES (occurrence: ES)
  Receive Date: 20210817
  Receipt Date: 20210924
  Transmission Date: 20211014
  Serious: Yes (Other)
  Sender: FDA-Public Use
  Company Number: ES-AUROBINDO-AUR-APL-2021-034933

PATIENT
  Age: 41 Year
  Sex: Male

DRUGS (2)
  1. ABILIFY MAINTENA [Suspect]
     Active Substance: ARIPIPRAZOLE
     Indication: BIPOLAR DISORDER
     Dosage: 200 MILLIGRAM (EVERY 45 DAYS )
     Route: 065
     Dates: start: 201511, end: 20200602
  2. ARIPIPRAZOLE TABLETS [Suspect]
     Active Substance: ARIPIPRAZOLE
     Indication: BIPOLAR DISORDER
     Dosage: UNK
     Route: 065
     Dates: start: 2015

REACTIONS (5)
  - Underdose [Unknown]
  - Pulmonary embolism [Recovered/Resolved]
  - Antiphospholipid antibodies positive [Recovered/Resolved]
  - Inappropriate schedule of product administration [Unknown]
  - Deep vein thrombosis [Recovered/Resolved]
